FAERS Safety Report 18135536 (Version 1)
Quarter: 2020Q3

REPORT INFORMATION
  Report Type: Spontaneous
  Country: ES (occurrence: ES)
  Receive Date: 20200811
  Receipt Date: 20200811
  Transmission Date: 20201103
  Serious: Yes (Other)
  Sender: FDA-Public Use
  Company Number: ES-PFIZER INC-2020300199

PATIENT
  Age: 63 Year
  Sex: Male
  Weight: 64.5 kg

DRUGS (4)
  1. IDARUBICIN HCL [Suspect]
     Active Substance: IDARUBICIN HYDROCHLORIDE
     Indication: ACUTE MYELOID LEUKAEMIA
     Dosage: 21 MG, 1X/DAY (21 MG INTRAVENOUS BOLUS ON JUNE 4, 5 AND 6, 2020)
     Route: 042
     Dates: start: 20200604, end: 20200606
  2. QUIZARTINIB [Suspect]
     Active Substance: QUIZARTINIB
     Dosage: 30 MG, 1X/DAY, 14 DAYS, EVERY CYCLE
     Route: 048
     Dates: start: 20200622, end: 20200629
  3. QUIZARTINIB [Suspect]
     Active Substance: QUIZARTINIB
     Indication: ACUTE MYELOID LEUKAEMIA
     Dosage: 30 MG, 1X/DAY (30 MG 14 DAYS EVERY CYCLE)
     Route: 048
     Dates: start: 20200615, end: 20200620
  4. CYTARABINE. [Suspect]
     Active Substance: CYTARABINE
     Indication: ACUTE MYELOID LEUKAEMIA
     Dosage: 360 MG, 1X/DAY (360 MG AS A 24?HOUR INTRAVENOUS INFUSION ON JUNE 4, 5, 6, 7, 8, 9 AND 10, 2020)
     Route: 041
     Dates: start: 20200604, end: 20200610

REACTIONS (1)
  - Long QT syndrome [Recovered/Resolved]

NARRATIVE: CASE EVENT DATE: 20200620
